FAERS Safety Report 18036229 (Version 1)
Quarter: 2020Q3

REPORT INFORMATION
  Report Type: Spontaneous
  Country: US (occurrence: US)
  Receive Date: 20200717
  Receipt Date: 20200717
  Transmission Date: 20201103
  Serious: Yes (Other)
  Sender: FDA-Public Use
  Company Number: None

PATIENT
  Age: 71 Year
  Sex: Female
  Weight: 67.05 kg

DRUGS (6)
  1. RX# 7046565 HYDROCHLOROTHIAZIDE 25 MG TAB UNIC [Suspect]
     Active Substance: HYDROCHLOROTHIAZIDE
     Indication: HYPERTENSION
     Dosage: ?          QUANTITY:1 TABLET(S);?
     Route: 067
     Dates: start: 20200712, end: 20200717
  2. ENALAPRIL MALEATE. [Concomitant]
     Active Substance: ENALAPRIL MALEATE
  3. SYNTHROID [Concomitant]
     Active Substance: LEVOTHYROXINE SODIUM
  4. PREMARIN CREAM [Concomitant]
  5. LATANOPROST. [Concomitant]
     Active Substance: LATANOPROST
  6. VITAMIN D3 [Concomitant]
     Active Substance: CHOLECALCIFEROL

REACTIONS (7)
  - Glaucoma [None]
  - Headache [None]
  - Muscle spasms [None]
  - Migraine [None]
  - Condition aggravated [None]
  - Pain in extremity [None]
  - Eye pain [None]

NARRATIVE: CASE EVENT DATE: 20200716
